FAERS Safety Report 6528688-X (Version None)
Quarter: 2010Q1

REPORT INFORMATION
  Report Type: 
  Country: None (occurrence: None)
  Receive Date: 20100106
  Receipt Date: 20091230
  Transmission Date: 20100710
  Serious: Yes (Other)
  Sender: FDA-Public Use
  Company Number: US-JNJFOC-20090908428

PATIENT
  Sex: Female

DRUGS (4)
  1. REMICADE [Suspect]
     Indication: CROHN'S DISEASE
     Route: 042
     Dates: start: 20090401
  2. INFLUENZA VACCINE [Suspect]
     Indication: INFLUENZA IMMUNISATION
     Route: 058
  3. NEXIUM [Concomitant]
     Indication: NAUSEA
  4. IBUPROFEN [Concomitant]
     Indication: PAIN

REACTIONS (5)
  - DYSPNOEA [None]
  - EYE SWELLING [None]
  - LIP SWELLING [None]
  - SWOLLEN TONGUE [None]
  - URTICARIA [None]
